FAERS Safety Report 6575627-1 (Version None)
Quarter: 2010Q1

REPORT INFORMATION
  Report Type: 
  Country: None (occurrence: None)
  Receive Date: 20100209
  Receipt Date: 20100203
  Transmission Date: 20100710
  Serious: Yes (Hospitalization)
  Sender: FDA-Public Use
  Company Number: B0632125A

PATIENT
  Sex: Male

DRUGS (2)
  1. ALKERAN [Suspect]
     Indication: NON-HODGKIN'S LYMPHOMA
     Dosage: 269MG PER DAY
     Route: 042
     Dates: start: 20091007, end: 20091007
  2. MITOXANTRONE [Suspect]
     Indication: NON-HODGKIN'S LYMPHOMA
     Dosage: 114MG PER DAY
     Route: 042
     Dates: start: 20091007, end: 20091007

REACTIONS (3)
  - BRONCHOPNEUMONIA [None]
  - STAPHYLOCOCCAL SEPSIS [None]
  - STOMATITIS [None]
